FAERS Safety Report 22264607 (Version 1)
Quarter: 2023Q2

REPORT INFORMATION
  Report Type: Spontaneous
  Country: RU (occurrence: None)
  Receive Date: 20230428
  Receipt Date: 20230428
  Transmission Date: 20230722
  Serious: Yes (Other)
  Sender: FDA-Public Use
  Company Number: 2023A098348

PATIENT
  Sex: Female

DRUGS (3)
  1. PULMICORT TURBUHALER [Suspect]
     Active Substance: BUDESONIDE
     Dosage: UNKNOWN
     Route: 055
  2. SERETIDE [Concomitant]
     Active Substance: FLUTICASONE PROPIONATE\SALMETEROL XINAFOATE
     Dosage: 25/125 TWICE A DAY
     Dates: start: 202003, end: 202212
  3. FENOTEROL HYDROBROMIDE\IPRATROPIUM BROMIDE [Concomitant]
     Active Substance: FENOTEROL HYDROBROMIDE\IPRATROPIUM BROMIDE
     Dosage: UNKNOWN

REACTIONS (10)
  - Asphyxia [Unknown]
  - Respiratory tract infection viral [Unknown]
  - Drug hypersensitivity [Unknown]
  - Breath sounds abnormal [Unknown]
  - Peak expiratory flow rate decreased [Unknown]
  - Nasal congestion [Unknown]
  - Cerebrovascular disorder [Unknown]
  - Cough [Unknown]
  - Bronchitis [Unknown]
  - Dysphonia [Unknown]
